FAERS Safety Report 6811044-4 (Version None)
Quarter: 2010Q2

REPORT INFORMATION
  Report Type: 
  Country: None (occurrence: None)
  Receive Date: 20100630
  Receipt Date: 20090123
  Transmission Date: 20101027
  Serious: No
  Sender: FDA-Public Use
  Company Number: US-PFIZER INC-2008152865

PATIENT
  Sex: Female
  Weight: 63.5 kg

DRUGS (3)
  1. ESTRING [Suspect]
     Indication: VULVOVAGINAL DRYNESS
     Dosage: UNK
     Dates: start: 20080928
  2. ESTRING [Suspect]
     Indication: VULVOVAGINAL DISCOMFORT
  3. SYMBICORT [Concomitant]
     Dosage: UNK

REACTIONS (2)
  - PAPILLOMA VIRAL INFECTION [None]
  - POST PROCEDURAL HAEMORRHAGE [None]
